FAERS Safety Report 4357476-8 (Version None)
Quarter: 2004Q2

REPORT INFORMATION
  Report Type: 
  Country: None (occurrence: None)
  Receive Date: 20040510
  Receipt Date: 20040503
  Transmission Date: 20050107
  Serious: Yes (Life-Threatening, Hospitalization)
  Sender: FDA-Public Use
  Company Number: STA-AE-04-MTX-174

PATIENT
  Age: 66 Year
  Sex: Female

DRUGS (3)
  1. RHEUMATREX [Suspect]
     Indication: RHEUMATOID ARTHRITIS
     Dosage: 4 MG/WEEK, ORAL
     Route: 048
     Dates: start: 19980101, end: 20000101
  2. RHEUMATREX [Suspect]
     Indication: RHEUMATOID ARTHRITIS
     Dosage: 8 MG/WEEK, ORAL
     Route: 048
     Dates: start: 20000101, end: 20021201
  3. NON-STEROIDAL ANTI-INFLAMMATORY AGENT [Concomitant]

REACTIONS (10)
  - DEPRESSED LEVEL OF CONSCIOUSNESS [None]
  - DISSEMINATED INTRAVASCULAR COAGULATION [None]
  - FALL [None]
  - LISTERIOSIS [None]
  - MEDICATION ERROR [None]
  - MENINGITIS [None]
  - PANCYTOPENIA [None]
  - POLYURIA [None]
  - SEPSIS [None]
  - SUBARACHNOID HAEMORRHAGE [None]
